FAERS Safety Report 5718694-7 (Version None)
Quarter: 2008Q2

REPORT INFORMATION
  Report Type: 
  Country: None (occurrence: None)
  Receive Date: 20080425
  Receipt Date: 20080414
  Transmission Date: 20081010
  Serious: Yes (Other)
  Sender: FDA-Public Use
  Company Number: KR-PFIZER INC-2008033626

PATIENT
  Sex: Female

DRUGS (2)
  1. NEURONTIN [Suspect]
     Route: 048
  2. LYRICA [Suspect]
     Route: 048

REACTIONS (4)
  - COLD SWEAT [None]
  - CONSTIPATION [None]
  - DEAFNESS BILATERAL [None]
  - DIZZINESS [None]
